FAERS Safety Report 8211971-X (Version None)
Quarter: 2012Q1

REPORT INFORMATION
  Report Type: 
  Country: None (occurrence: None)
  Receive Date: 20120315
  Receipt Date: 20120303
  Transmission Date: 20120608
  Serious: Yes (Hospitalization)
  Sender: FDA-Public Use
  Company Number: AU-BAXTER-2012BH006476

PATIENT
  Sex: Female

DRUGS (7)
  1. SODIUM CHLORIDE 0.9% IN PLASTIC CONTAINER [Suspect]
     Indication: MEDICAL DIET
     Route: 065
     Dates: start: 20120224
  2. IRON [Suspect]
     Indication: NUTRITIONAL SUPPORT
     Route: 065
     Dates: start: 20120224
  3. GLUCOSE (DEXTROSE) SOLUTION FOR INTRAVENOUS INFUSION 25% [Suspect]
     Indication: NUTRITIONAL SUPPORT
     Route: 065
     Dates: start: 20120224
  4. TRAVASOL 10% W/ ELECTROLYTES [Suspect]
     Indication: NUTRITIONAL SUPPORT
     Route: 065
     Dates: start: 20120224
  5. TRACE ELEMENTS [Suspect]
     Indication: NUTRITIONAL SUPPORT
     Route: 065
     Dates: start: 20120224
  6. CALCIUM GLUCONATE [Suspect]
     Indication: NUTRITIONAL SUPPORT
     Route: 065
     Dates: start: 20120224
  7. CLINOLEIC 20% [Suspect]
     Indication: NUTRITIONAL SUPPORT
     Route: 065
     Dates: start: 20120224

REACTIONS (3)
  - PRODUCT OUTER PACKAGING ISSUE [None]
  - GASTROINTESTINAL DISORDER [None]
  - POOR QUALITY DRUG ADMINISTERED [None]
